FAERS Safety Report 6189475-8 (Version None)
Quarter: 2009Q2

REPORT INFORMATION
  Report Type: 
  Country: None (occurrence: None)
  Receive Date: 20090514
  Receipt Date: 20090507
  Transmission Date: 20091009
  Serious: Yes (Other)
  Sender: FDA-Public Use
  Company Number: DE-PFIZER INC-2009156919

PATIENT

DRUGS (2)
  1. CAMPTOSAR [Suspect]
     Indication: GLIOBLASTOMA
  2. BEVACIZUMAB [Suspect]
     Indication: GLIOBLASTOMA

REACTIONS (2)
  - FALL [None]
  - PELVIC FRACTURE [None]
